FAERS Safety Report 7302220-5 (Version None)
Quarter: 2011Q1

REPORT INFORMATION
  Report Type: 
  Country: None (occurrence: None)
  Receive Date: 20110218
  Receipt Date: 20110214
  Transmission Date: 20110831
  Serious: Yes (Death, Hospitalization, Other)
  Sender: FDA-Public Use
  Company Number: PHHY2010BE05892

PATIENT
  Sex: Male

DRUGS (19)
  1. SOLU-MEDROL [Concomitant]
     Dosage: 40 MG, TID
     Dates: start: 20091201
  2. FRAXIPARINE [Concomitant]
     Dosage: 0.3 ML, UNK
     Route: 058
  3. FLUCONAZOLE [Concomitant]
     Dosage: 200 MG, UNK
     Route: 042
  4. FENOTEROL [Concomitant]
     Dosage: 1250 UG, UNK
  5. HIBITANE [Concomitant]
     Dosage: UNK
     Dates: start: 20091201
  6. MORPHINE [Concomitant]
     Dosage: 10 MG, UNK
     Route: 058
  7. KABIVEN [Concomitant]
     Dosage: 9 GR N/2400
  8. ADDAMEL [Concomitant]
  9. SOLUVIT [Concomitant]
  10. MORPHINE HYDROCHLORIDE [Concomitant]
     Dosage: 40 MG, UNK
     Dates: start: 20091201
  11. AVELOX [Concomitant]
     Dosage: 400 MG, UNK
     Route: 042
     Dates: start: 20091201
  12. IPRATROPIUM BROMIDE [Concomitant]
     Dosage: 500 UG, UNK
  13. VITALIPID [Concomitant]
  14. BORAX GLISERIN [Concomitant]
  15. NEXAVAR [Concomitant]
  16. CONTRAMAL [Concomitant]
     Dosage: 10 ML, UNK
     Dates: start: 20091201
  17. MOVICOL [Concomitant]
  18. AFINITOR [Suspect]
     Indication: RENAL CELL CARCINOMA
     Dosage: 10 MG, DAILY
     Route: 048
     Dates: start: 20091217, end: 20100125
  19. DURAGESIC-100 [Concomitant]
     Dosage: 25 UG/HR, UNK

REACTIONS (19)
  - COUGH [None]
  - WHEEZING [None]
  - FATIGUE [None]
  - SUPERINFECTION [None]
  - UPPER RESPIRATORY TRACT INFECTION [None]
  - BACTERIAL INFECTION [None]
  - LUNG INFILTRATION [None]
  - METASTASES TO BONE [None]
  - DYSPNOEA [None]
  - PYREXIA [None]
  - PRODUCTIVE COUGH [None]
  - BRONCHOPNEUMONIA [None]
  - PULMONARY FIBROSIS [None]
  - METASTASES TO ADRENALS [None]
  - RESPIRATORY FAILURE [None]
  - INTERSTITIAL LUNG DISEASE [None]
  - LUNG DISORDER [None]
  - LYMPHADENOPATHY [None]
  - GAMMA-GLUTAMYLTRANSFERASE INCREASED [None]
